FAERS Safety Report 9506517 (Version 2)
Quarter: 2013Q3

REPORT INFORMATION
  Report Type: Spontaneous
  Country: FR (occurrence: FR)
  Receive Date: 20130906
  Receipt Date: 20130906
  Transmission Date: 20140515
  Serious: Yes (Hospitalization)
  Sender: FDA-Public Use
  Company Number: PHHY2012FR080735

PATIENT
  Age: 84 Year
  Sex: Female

DRUGS (7)
  1. COTAREG [Suspect]
     Indication: HYPERTENSION
     Dosage: 1 DF, DAILY (160 MG VALS, UNK HCTZ)
     Dates: end: 20120830
  2. XANAX [Suspect]
     Dosage: 1 DF, TID
     Route: 048
  3. NORSET [Suspect]
     Dosage: 15 MG, DAILY
     Route: 048
     Dates: end: 20120830
  4. MONO-TILDIEM [Suspect]
     Indication: HYPERTENSION
     Dosage: 1 DF, DAILY
     Route: 048
     Dates: end: 20120830
  5. TAHOR [Suspect]
     Indication: HYPERCHOLESTEROLAEMIA
     Dosage: 1 DF (40 MG) DAILY
     Route: 048
     Dates: end: 20120830
  6. LASILIX [Suspect]
     Indication: HYPERTENSION
     Dosage: 1 DF, DAILY
     Route: 048
     Dates: end: 20120827
  7. HYPERIUM [Suspect]
     Indication: HYPERTENSION
     Dosage: 1 DF, DAILY
     Route: 048
     Dates: end: 20120830

REACTIONS (6)
  - Cholestasis [Recovered/Resolved]
  - Hepatocellular injury [Recovered/Resolved]
  - Hepatotoxicity [Not Recovered/Not Resolved]
  - Renal failure acute [Recovered/Resolved]
  - Nephropathy toxic [Not Recovered/Not Resolved]
  - Haemolysis [Not Recovered/Not Resolved]
